FAERS Safety Report 10560149 (Version 4)
Quarter: 2015Q3

REPORT INFORMATION
  Report Type: Report from Study
  Country: US (occurrence: US)
  Receive Date: 20141103
  Receipt Date: 20150826
  Transmission Date: 20151125
  Serious: Yes (Other)
  Sender: FDA-Public Use
  Company Number: US-ALEXION-A201404152

PATIENT

DRUGS (1)
  1. SOLIRIS [Suspect]
     Active Substance: ECULIZUMAB
     Indication: PAROXYSMAL NOCTURNAL HAEMOGLOBINURIA
     Dosage: UNK
     Route: 042

REACTIONS (9)
  - Infection [Unknown]
  - Chronic obstructive pulmonary disease [Unknown]
  - Varicose vein [Unknown]
  - Chronic kidney disease [Unknown]
  - Blood creatinine abnormal [Unknown]
  - Emphysema [Unknown]
  - Asthma [Unknown]
  - Headache [Unknown]
  - Fatigue [Unknown]
